FAERS Safety Report 17505450 (Version 5)
Quarter: 2020Q3

REPORT INFORMATION
  Report Type: Report from Study
  Country: DE (occurrence: DE)
  Receive Date: 20200305
  Receipt Date: 20200813
  Transmission Date: 20201102
  Serious: Yes (Other)
  Sender: FDA-Public Use
  Company Number: DE-TEVA-2020-DE-1194672

PATIENT
  Age: 37 Year
  Sex: Female

DRUGS (12)
  1. ESTRADIOL. [Suspect]
     Active Substance: ESTRADIOL
     Indication: OSTEOPOROSIS
     Route: 065
  2. GYNOKADIN /00045401/ [Suspect]
     Active Substance: ESTRADIOL
     Indication: OSTEOPOROSIS
     Dosage: HORMONE SUPPLEMENTARY TREATMENT, TOGETHER WITH UTROGEST
     Route: 065
     Dates: end: 20190812
  3. OCREVUS [Suspect]
     Active Substance: OCRELIZUMAB
     Indication: RELAPSING MULTIPLE SCLEROSIS
     Route: 042
     Dates: start: 20190701
  4. OCREVUS [Suspect]
     Active Substance: OCRELIZUMAB
     Indication: SECONDARY PROGRESSIVE MULTIPLE SCLEROSIS
     Route: 042
     Dates: start: 20190701
  5. UTROGEST [Suspect]
     Active Substance: PROGESTERONE
     Indication: OSTEOPOROSIS
     Route: 065
  6. FLUVOXAMINE [Concomitant]
     Active Substance: FLUVOXAMINE
     Route: 065
  7. TOLTERODIN [Concomitant]
     Active Substance: TOLTERODINE TARTRATE
     Route: 065
  8. FOLINIC ACID [Concomitant]
     Active Substance: LEUCOVORIN
     Route: 065
  9. ESTRADIOL. [Suspect]
     Active Substance: ESTRADIOL
     Indication: OSTEOPOROSIS
     Route: 065
  10. UTROGEST [Suspect]
     Active Substance: PROGESTERONE
     Dosage: HORMONE SUPPLEMENTARY TREATMENT, TOGETHER WITH GYNOKADIN
     Route: 065
     Dates: end: 20190812
  11. CALCIUM [Concomitant]
     Active Substance: CALCIUM
     Dosage: TOGETHER WITH VITAMIN D
     Route: 065
  12. FERRUM                             /00023502/ [Concomitant]

REACTIONS (36)
  - White blood cell count decreased [Recovered/Resolved]
  - Coordination abnormal [Not Recovered/Not Resolved]
  - Myalgia [Not Recovered/Not Resolved]
  - Fatigue [Recovered/Resolved]
  - Migraine [Recovered/Resolved]
  - Nail bed inflammation [Recovered/Resolved]
  - Musculoskeletal stiffness [Recovered/Resolved]
  - Salivary hypersecretion [Recovered/Resolved]
  - Visual impairment [Recovered/Resolved]
  - Arthralgia [Recovering/Resolving]
  - Nerve compression [Unknown]
  - Paraesthesia [Recovering/Resolving]
  - Gait disturbance [Recovered/Resolved]
  - Multiple sclerosis relapse [Unknown]
  - Chest pain [Recovered/Resolved]
  - Food poisoning [Recovered/Resolved]
  - Weight decreased [Recovered/Resolved]
  - Headache [Recovered/Resolved]
  - Insomnia [Recovered/Resolved]
  - Cardiovascular insufficiency [Not Recovered/Not Resolved]
  - Circulatory collapse [Recovered/Resolved]
  - Muscular weakness [Not Recovered/Not Resolved]
  - Anxiety [Not Recovered/Not Resolved]
  - Throat irritation [Recovered/Resolved]
  - Nasopharyngitis [Recovered/Resolved]
  - Fluid retention [Recovering/Resolving]
  - Urinary incontinence [Recovering/Resolving]
  - Panic attack [Not Recovered/Not Resolved]
  - Depression [Recovered/Resolved]
  - Fatigue [Not Recovered/Not Resolved]
  - Nausea [Not Recovered/Not Resolved]
  - Limb discomfort [Recovering/Resolving]
  - Visual field defect [Recovered/Resolved]
  - Vision blurred [Recovered/Resolved]
  - Blood pressure decreased [Recovered/Resolved]
  - Skin burning sensation [Recovered/Resolved]

NARRATIVE: CASE EVENT DATE: 20190701
